FAERS Safety Report 20657409 (Version 1)
Quarter: 2022Q1

REPORT INFORMATION
  Report Type: Spontaneous
  Country: US (occurrence: US)
  Receive Date: 20220331
  Receipt Date: 20220331
  Transmission Date: 20220424
  Serious: No
  Sender: FDA-Public Use
  Company Number: US-NOVARTISTESTPH-NVSC2022US072711

PATIENT
  Sex: Female

DRUGS (1)
  1. ESTRADIOL [Suspect]
     Active Substance: ESTRADIOL
     Indication: Product used for unknown indication
     Dosage: 0.075 MG, QD
     Route: 065

REACTIONS (5)
  - Drug ineffective [Unknown]
  - Hormone level abnormal [Unknown]
  - Insomnia [Unknown]
  - Feeling abnormal [Unknown]
  - Hot flush [Unknown]
